FAERS Safety Report 16085354 (Version 3)
Quarter: 2019Q2

REPORT INFORMATION
  Report Type: Spontaneous
  Country: JP (occurrence: JP)
  Receive Date: 20190318
  Receipt Date: 20190412
  Transmission Date: 20190711
  Serious: Yes (Death, Other)
  Sender: FDA-Public Use
  Company Number: JP-PFIZER INC-2019115045

PATIENT
  Age: 70 Year
  Sex: Male

DRUGS (3)
  1. GEMCITABINE HYDROCHLORIDE. [Suspect]
     Active Substance: GEMCITABINE HYDROCHLORIDE
     Indication: BLADDER TRANSITIONAL CELL CARCINOMA
     Dosage: ON DAY 1 AND DAY 8 OF A 3-WEEK CYCLE
     Route: 042
     Dates: start: 201106, end: 2011
  2. GEMCITABINE HYDROCHLORIDE. [Suspect]
     Active Substance: GEMCITABINE HYDROCHLORIDE
     Dosage: REDUCED TO 80%
     Route: 042
     Dates: start: 2011
  3. OXALIPLATIN. [Suspect]
     Active Substance: OXALIPLATIN
     Indication: BLADDER TRANSITIONAL CELL CARCINOMA
     Dosage: ON DAY 1 OF A 3-WEEK CYCLE
     Route: 042
     Dates: start: 201106

REACTIONS (2)
  - Neuropathy peripheral [Unknown]
  - Peripheral sensory neuropathy [Unknown]
